FAERS Safety Report 5314102-9 (Version None)
Quarter: 2007Q2

REPORT INFORMATION
  Report Type: 
  Country: None (occurrence: None)
  Receive Date: 20070501
  Receipt Date: 20070423
  Transmission Date: 20071010
  Serious: Yes (Other)
  Sender: FDA-Public Use
  Company Number: BR-ABBOTT-07P-020-0363265-00

PATIENT
  Age: 7 Year
  Sex: Male
  Weight: 20 kg

DRUGS (13)
  1. DEPAKENE [Suspect]
     Indication: BRAIN MASS
     Route: 048
     Dates: start: 20020101
  2. DEPAKENE [Suspect]
     Route: 048
  3. DEPAKENE [Suspect]
  4. TOPIRAMATE [Concomitant]
     Indication: BRAIN MASS
     Route: 048
     Dates: start: 20060801
  5. NITRAZEPAM [Concomitant]
     Indication: BRAIN MASS
     Route: 048
     Dates: start: 20040101
  6. OMEPRAZOLE [Concomitant]
     Indication: DRUG USE FOR UNKNOWN INDICATION
     Route: 048
  7. DOMPERIDONE [Concomitant]
     Indication: DRUG USE FOR UNKNOWN INDICATION
     Route: 048
  8. DIMETICONE [Concomitant]
     Indication: FLATULENCE
     Route: 048
  9. FOLIC ACID [Concomitant]
     Indication: DRUG USE FOR UNKNOWN INDICATION
     Route: 048
  10. HOMEOPATHY [Concomitant]
     Indication: DRUG USE FOR UNKNOWN INDICATION
     Route: 048
  11. COD LIVER OIL [Concomitant]
     Indication: FLATULENCE
     Route: 048
  12. CETIRIZINE HYDROCHLORIDE [Concomitant]
     Indication: HYPERSENSITIVITY
     Route: 048
     Dates: start: 20040101
  13. CETIRIZINE HYDROCHLORIDE [Concomitant]
     Route: 048

REACTIONS (2)
  - PLATELET COUNT DECREASED [None]
  - RESPIRATORY TRACT CONGESTION [None]
